FAERS Safety Report 16112069 (Version 1)
Quarter: 2019Q1

REPORT INFORMATION
  Report Type: Spontaneous
  Country: US (occurrence: US)
  Receive Date: 20190325
  Receipt Date: 20190325
  Transmission Date: 20190418
  Serious: No
  Sender: FDA-Public Use
  Company Number: US-ALKERMES INC.-ALK-2019-001390

PATIENT
  Sex: Female

DRUGS (1)
  1. VIVITROL [Suspect]
     Active Substance: NALTREXONE
     Indication: PRODUCT USED FOR UNKNOWN INDICATION
     Dosage: 380 MG, QMO
     Route: 030

REACTIONS (9)
  - Tremor [Unknown]
  - Diarrhoea [Unknown]
  - Rhinorrhoea [Unknown]
  - Influenza like illness [Unknown]
  - Myalgia [Unknown]
  - Chills [Unknown]
  - Sneezing [Unknown]
  - Nausea [Unknown]
  - Muscle spasms [Unknown]
